FAERS Safety Report 21896216 (Version 1)
Quarter: 2023Q1

REPORT INFORMATION
  Report Type: Spontaneous
  Country: US (occurrence: US)
  Receive Date: 20230123
  Receipt Date: 20230123
  Transmission Date: 20230418
  Serious: Yes (Other)
  Sender: FDA-Public Use
  Company Number: US-drreddys-SPO/USA/23/0160049

PATIENT
  Age: 29 Year
  Sex: Male

DRUGS (1)
  1. ZENATANE [Suspect]
     Active Substance: ISOTRETINOIN
     Indication: Product used for unknown indication
     Dosage: 06 DECEMBER 2022 02:10:38 PM, 04 NOVEMBER 2022 05:37:03 PM

REACTIONS (2)
  - Mood altered [Unknown]
  - Depression [Unknown]
